FAERS Safety Report 8357242-2 (Version None)
Quarter: 2012Q2

REPORT INFORMATION
  Report Type: 
  Country: None (occurrence: None)
  Receive Date: 20120514
  Receipt Date: 20120508
  Transmission Date: 20120825
  Serious: Yes (Other)
  Sender: FDA-Public Use
  Company Number: TR-ROCHE-1063770

PATIENT
  Sex: Female

DRUGS (2)
  1. XELODA [Suspect]
     Indication: BREAST CANCER
     Dosage: 4+3
     Route: 048
     Dates: start: 20111107
  2. XELODA [Suspect]
     Indication: LUNG NEOPLASM MALIGNANT

REACTIONS (1)
  - DISEASE PROGRESSION [None]
